FAERS Safety Report 10233878 (Version 3)
Quarter: 2014Q2

REPORT INFORMATION
  Report Type: Spontaneous
  Country: US (occurrence: US)
  Receive Date: 20140612
  Receipt Date: 20140626
  Transmission Date: 20141212
  Serious: Yes (Other)
  Sender: FDA-Public Use
  Company Number: US-MYLANLABS-2014S1013506

PATIENT
  Age: 28 Year
  Sex: Male
  Weight: 122.47 kg

DRUGS (1)
  1. EPIPEN 2-PAK [Suspect]
     Dates: start: 20140604, end: 20140604

REACTIONS (3)
  - Accidental exposure to product [Recovered/Resolved]
  - Injection site ischaemia [Recovered/Resolved]
  - Expired product administered [Recovered/Resolved]
